FAERS Safety Report 6230390-9 (Version None)
Quarter: 2009Q2

REPORT INFORMATION
  Report Type: 
  Country: None (occurrence: None)
  Receive Date: 20090611
  Receipt Date: 20090605
  Transmission Date: 20091009
  Serious: Yes (Hospitalization)
  Sender: FDA-Public Use
  Company Number: 2009001626

PATIENT
  Age: 82 Year
  Sex: Female
  Weight: 70.2 kg

DRUGS (27)
  1. ERLOTINIB (ERLOTINIB) (TABLET) (ERLOTINIB) [Suspect]
     Indication: LUNG NEOPLASM MALIGNANT
     Dosage: (150 MG), ORAL
     Route: 048
     Dates: start: 20090310
  2. BEVACIZUMAB (INJECTION FOR INFUSION) [Suspect]
     Indication: LUNG NEOPLASM MALIGNANT
     Dosage: (15 MG), INTRAVENOUS
     Route: 042
     Dates: start: 20090310
  3. PACLITAXEL [Suspect]
     Indication: LUNG NEOPLASM MALIGNANT
     Dosage: (175 MG/M2), INTRAVENOUS
     Route: 042
     Dates: start: 20090310
  4. CARBOPLATIN [Suspect]
     Indication: LUNG NEOPLASM MALIGNANT
     Dosage: (6 AUC), INTRAVENOUS
     Route: 042
     Dates: start: 20090310
  5. KEFLEX [Concomitant]
  6. TOPROL-XL [Concomitant]
  7. COMPAZINE [Concomitant]
  8. HYDROCORTISONE [Concomitant]
  9. PERCOCET [Concomitant]
  10. MEGACE [Concomitant]
  11. PROTONIX [Concomitant]
  12. VYTORIN [Concomitant]
  13. CALCIUM (CALCIUM) [Concomitant]
  14. ALEVE [Concomitant]
  15. ASACOL [Concomitant]
  16. MULTI-VITAMIN [Concomitant]
  17. ASCORBIC ACID [Concomitant]
  18. METOCLOPRAMIDE [Concomitant]
  19. TYLENOL ARTHRITIS (PARACETAMOL) [Concomitant]
  20. SENOKOT [Concomitant]
  21. IMODIUM [Concomitant]
  22. PROMETHAZINE [Concomitant]
  23. LOPRESSOR [Concomitant]
  24. OMEPRAZOLE [Concomitant]
  25. MESALAMINE [Concomitant]
  26. CALCIUM CARBONATE (CALCIUM CARBONATE) [Concomitant]
  27. FOSAMAX [Concomitant]

REACTIONS (10)
  - CEREBRAL HAEMORRHAGE [None]
  - CONSTIPATION [None]
  - DIARRHOEA [None]
  - ESCHERICHIA URINARY TRACT INFECTION [None]
  - FEBRILE NEUTROPENIA [None]
  - PANCREATIC MASS [None]
  - RENAL CYST [None]
  - SPEECH DISORDER [None]
  - THROMBOCYTOPENIA [None]
  - WHITE BLOOD CELL COUNT DECREASED [None]
